FAERS Safety Report 9315034 (Version 4)
Quarter: 2014Q2

REPORT INFORMATION
  Report Type: Spontaneous
  Country: CA (occurrence: CA)
  Receive Date: 20130529
  Receipt Date: 20140506
  Transmission Date: 20141212
  Serious: Yes (Hospitalization)
  Sender: FDA-Public Use
  Company Number: CA-JNJFOC-20130509997

PATIENT
  Age: 46 Year
  Sex: Female
  Weight: 72.58 kg

DRUGS (2)
  1. REACTINE ALLERGY SINUS [Suspect]
     Indication: SNEEZING
     Dosage: 5 MG REACTINE SINUS ALLERGY, ONCE ONLY IN THE EVENING
     Route: 048
     Dates: start: 20130506, end: 20130506
  2. REACTINE ALLERGY SINUS [Suspect]
     Indication: HYPERSENSITIVITY
     Dosage: 5 MG REACTINE SINUS ALLERGY, ONCE ONLY IN THE EVENING
     Route: 048
     Dates: start: 20130506, end: 20130506

REACTIONS (20)
  - Erythema [Unknown]
  - Palpitations [Recovering/Resolving]
  - Pain [Unknown]
  - Mobility decreased [Unknown]
  - Swelling [Recovering/Resolving]
  - Skin exfoliation [Unknown]
  - Blister [Unknown]
  - Blister [Unknown]
  - Impaired healing [Unknown]
  - Dermatitis allergic [Unknown]
  - Pain in extremity [Unknown]
  - Hypotension [Recovering/Resolving]
  - Impaired work ability [Unknown]
  - Burning sensation [Unknown]
  - Type I hypersensitivity [Unknown]
  - Somnolence [Unknown]
  - Rash [Recovered/Resolved]
  - Rash generalised [Recovered/Resolved]
  - Product packaging issue [Unknown]
  - Oedema peripheral [Recovered/Resolved]
